FAERS Safety Report 8956466 (Version 2)
Quarter: 2013Q1

REPORT INFORMATION
  Report Type: Spontaneous
  Country: SE (occurrence: SE)
  Receive Date: 20121210
  Receipt Date: 20130128
  Transmission Date: 20140127
  Serious: Yes (Hospitalization, Other)
  Sender: FDA-Public Use
  Company Number: SE-ASTRAZENECA-2012SE90215

PATIENT
  Age: 68 Year
  Sex: Female

DRUGS (2)
  1. BRILIQUE [Suspect]
     Route: 048
     Dates: end: 20121008
  2. ENALAPRIL [Suspect]
     Route: 065
     Dates: end: 201210

REACTIONS (4)
  - Dyspnoea [Recovered/Resolved]
  - Coronary artery restenosis [Unknown]
  - Cough [Unknown]
  - Cough [Recovered/Resolved]
